FAERS Safety Report 9412794 (Version 1)
Quarter: 2013Q3

REPORT INFORMATION
  Report Type: Spontaneous
  Country: DE (occurrence: DE)
  Receive Date: 20130722
  Receipt Date: 20130722
  Transmission Date: 20140515
  Serious: Yes (Other)
  Sender: FDA-Public Use
  Company Number: DE-BAYER-2013-087917

PATIENT
  Age: 60 Year
  Sex: Female

DRUGS (1)
  1. AVALOX [Suspect]
     Dosage: UNK
     Dates: start: 2013, end: 2013

REACTIONS (2)
  - Ageusia [Not Recovered/Not Resolved]
  - Anosmia [Not Recovered/Not Resolved]
